FAERS Safety Report 7292639-3 (Version None)
Quarter: 2011Q1

REPORT INFORMATION
  Report Type: 
  Country: None (occurrence: None)
  Receive Date: 20110210
  Receipt Date: 20110210
  Transmission Date: 20110831
  Serious: Yes (Life-Threatening, Other)
  Sender: FDA-Public Use
  Company Number: None

PATIENT
  Age: 55 Year
  Sex: Male
  Weight: 120.2032 kg

DRUGS (1)
  1. TRIAD ALCOHOL WIPES TRIAD [Suspect]
     Indication: THERAPEUTIC SKIN CARE TOPICAL
     Dosage: 1 OR 2 WIPES WEEKLY TOP
     Route: 061
     Dates: start: 20100808, end: 20110208

REACTIONS (3)
  - PRODUCT CONTAMINATION MICROBIAL [None]
  - INJECTION SITE INFECTION [None]
  - BACTERIAL INFECTION [None]
